FAERS Safety Report 15322460 (Version 5)
Quarter: 2018Q4

REPORT INFORMATION
  Report Type: Spontaneous
  Country: DE (occurrence: DE)
  Receive Date: 20180827
  Receipt Date: 20181123
  Transmission Date: 20190204
  Serious: Yes (Hospitalization)
  Sender: FDA-Public Use
  Company Number: PHHY2018DE079695

PATIENT
  Age: 76 Year
  Sex: Female

DRUGS (5)
  1. PREDNISOLONE. [Concomitant]
     Active Substance: PREDNISOLONE
     Indication: RHEUMATOID ARTHRITIS
     Dosage: 5 MG, QD
     Route: 065
  2. STRONTIUM RANELATE [Suspect]
     Active Substance: STRONTIUM RANELATE
     Indication: OSTEOPOROSIS
     Dosage: UNK
     Route: 065
  3. ZOLEDRONATE [Suspect]
     Active Substance: ZOLEDRONIC ACID
     Indication: OSTEOPOROSIS
     Dosage: UNK
     Route: 065
     Dates: start: 2009, end: 201301
  4. PROLIA [Suspect]
     Active Substance: DENOSUMAB
     Indication: OSTEOPOROSIS
     Route: 065
  5. RISEDRONATE SODIUM. [Suspect]
     Active Substance: RISEDRONATE SODIUM
     Indication: OSTEOPOROSIS
     Dosage: UNK
     Route: 065

REACTIONS (3)
  - Atypical fracture [Recovered/Resolved]
  - Tibia fracture [Recovered/Resolved with Sequelae]
  - Metaphyseal corner fracture [Recovered/Resolved with Sequelae]

NARRATIVE: CASE EVENT DATE: 201410
